FAERS Safety Report 7341608-3 (Version None)
Quarter: 2011Q1

REPORT INFORMATION
  Report Type: 
  Country: None (occurrence: None)
  Receive Date: 20110301
  Receipt Date: 20110221
  Transmission Date: 20110831
  Serious: Yes (Other)
  Sender: FDA-Public Use
  Company Number: FR-1185107

PATIENT
  Sex: Female

DRUGS (1)
  1. TRAVATAM 0.004 % OPHTHALMIC SOLUTION (TRAVATAN) [Suspect]
     Dosage: OPHTHALMIC
     Route: 047
     Dates: end: 20110217

REACTIONS (5)
  - BLOOD PRESSURE DECREASED [None]
  - HEART RATE DECREASED [None]
  - ASTHENIA [None]
  - FATIGUE [None]
  - COUGH [None]
